FAERS Safety Report 5803180-6 (Version None)
Quarter: 2008Q3

REPORT INFORMATION
  Report Type: 
  Country: None (occurrence: None)
  Receive Date: 20080708
  Receipt Date: 20080627
  Transmission Date: 20090109
  Serious: Yes (Death, Other)
  Sender: FDA-Public Use
  Company Number: HQWYE176319JUL06

PATIENT
  Sex: Female

DRUGS (1)
  1. PREMARIN [Suspect]

REACTIONS (1)
  - BREAST CANCER METASTATIC [None]
